FAERS Safety Report 5217726-2 (Version None)
Quarter: 2007Q1

REPORT INFORMATION
  Report Type: 
  Country: None (occurrence: None)
  Receive Date: 20070124
  Receipt Date: 20070112
  Transmission Date: 20070707
  Serious: Yes (Hospitalization)
  Sender: FDA-Public Use
  Company Number: US-JNJFOC-20070103459

PATIENT
  Age: 42 Year
  Sex: Female

DRUGS (2)
  1. FENTANYL TRANSDERMAL SYSTEM [Suspect]
     Indication: PAIN
     Route: 062
  2. HYDROMORPHONE HCL [Suspect]
     Indication: PAIN
     Route: 048

REACTIONS (2)
  - MEDICATION ERROR [None]
  - UNRESPONSIVE TO STIMULI [None]
